FAERS Safety Report 10877627 (Version 3)
Quarter: 2015Q2

REPORT INFORMATION
  Report Type: Spontaneous
  Country: IT (occurrence: IT)
  Receive Date: 20150302
  Receipt Date: 20150630
  Transmission Date: 20150821
  Serious: Yes (Other)
  Sender: FDA-Public Use
  Company Number: IT-AMGEN-ITASP2015018274

PATIENT
  Age: 61 Year
  Sex: Female
  Weight: 53 kg

DRUGS (3)
  1. IRINOTECAN HYDROCHLORIDE TRIHYDRATE [Concomitant]
     Active Substance: IRINOTECAN HYDROCHLORIDE
     Indication: SUPPORTIVE CARE
     Dosage: 300 MG, UNK
     Route: 042
     Dates: start: 20150129, end: 20150129
  2. FLUOROURACIL. [Concomitant]
     Active Substance: FLUOROURACIL
     Indication: SUPPORTIVE CARE
     Dosage: 600 MG, UNK
     Route: 042
     Dates: start: 20150129, end: 20150129
  3. VECTIBIX [Suspect]
     Active Substance: PANITUMUMAB
     Indication: COLON CANCER
     Dosage: 300 MG, CYCLICAL
     Route: 042
     Dates: start: 20150129

REACTIONS (3)
  - Aphonia [Not Recovered/Not Resolved]
  - Hypoacusis [Not Recovered/Not Resolved]
  - Hypoaesthesia oral [Not Recovered/Not Resolved]

NARRATIVE: CASE EVENT DATE: 20150129
